FAERS Safety Report 8949915 (Version 1)
Quarter: 2012Q4

REPORT INFORMATION
  Report Type: 
  Country: US (occurrence: US)
  Receive Date: 20121205
  Receipt Date: 20121205
  Transmission Date: 20130627
  Serious: No
  Sender: FDA-Public Use
  Company Number: US-009507513-1212USA001130

PATIENT
  Age: 17 None
  Sex: Female
  Weight: 51.25 kg

DRUGS (1)
  1. IMPLANON [Suspect]
     Indication: OVARIAN CYST
     Dosage: 1 DF, UNK
     Route: 059
     Dates: start: 20120802, end: 20121128

REACTIONS (3)
  - Menorrhagia [Unknown]
  - Implant site vesicles [Unknown]
  - Off label use [Unknown]
